FAERS Safety Report 11646716 (Version 1)
Quarter: 2015Q4

REPORT INFORMATION
  Report Type: Spontaneous
  Country: US (occurrence: US)
  Receive Date: 20151020
  Receipt Date: 20151020
  Transmission Date: 20160304
  Serious: No
  Sender: FDA-Public Use
  Company Number: US-ROCHE-1624403

PATIENT
  Age: 73 Year
  Sex: Male

DRUGS (4)
  1. ESBRIET [Suspect]
     Active Substance: PIRFENIDONE
     Indication: IDIOPATHIC PULMONARY FIBROSIS
     Route: 048
     Dates: start: 20150509
  2. ASPIRIN. [Concomitant]
     Active Substance: ASPIRIN
  3. GLIPIRIDE [Concomitant]
     Active Substance: GLIMEPIRIDE
  4. SIMVASTATIN. [Concomitant]
     Active Substance: SIMVASTATIN

REACTIONS (3)
  - Decreased appetite [Unknown]
  - Nausea [Unknown]
  - Fatigue [Unknown]
